FAERS Safety Report 8405985-4 (Version None)
Quarter: 2012Q2

REPORT INFORMATION
  Report Type: 
  Country: None (occurrence: None)
  Receive Date: 20120604
  Receipt Date: 20120523
  Transmission Date: 20120825
  Serious: Yes (Hospitalization)
  Sender: FDA-Public Use
  Company Number: GR-US-EMD SERONO, INC.-7134846

PATIENT
  Age: 7 Year
  Sex: Male

DRUGS (2)
  1. SAIZEN [Suspect]
     Indication: DWARFISM
     Route: 058
     Dates: start: 20120409
  2. ALBUTEROL [Concomitant]
     Indication: ASTHMA
     Route: 055
     Dates: start: 20080101

REACTIONS (1)
  - ASTHMATIC CRISIS [None]
